FAERS Safety Report 11228462 (Version 2)
Quarter: 2015Q3

REPORT INFORMATION
  Report Type: Report from Study
  Country: US (occurrence: US)
  Receive Date: 20150630
  Receipt Date: 20150806
  Transmission Date: 20151125
  Serious: Yes (Hospitalization)
  Sender: FDA-Public Use
  Company Number: US-ALEXION-A201404991

PATIENT
  Age: 25 Year
  Sex: Female

DRUGS (97)
  1. PROGRAFT [Concomitant]
     Active Substance: TACROLIMUS
     Dosage: 2 MG, QHS
     Route: 048
     Dates: start: 20130415, end: 20130415
  2. PROGRAFT [Concomitant]
     Active Substance: TACROLIMUS
     Dosage: 3 TABS, QD
     Route: 048
  3. CATAPRES [Concomitant]
     Active Substance: CLONIDINE HYDROCHLORIDE
     Dosage: 0.2 MG, SINGLE
     Route: 048
     Dates: start: 20130510, end: 20130510
  4. PHENERGAN [Concomitant]
     Active Substance: PROMETHAZINE HYDROCHLORIDE
     Dosage: 12.5 MG, SINGLE
     Route: 042
     Dates: start: 20130420, end: 20130420
  5. AMBIEN [Concomitant]
     Active Substance: ZOLPIDEM TARTRATE
     Indication: PRODUCT USED FOR UNKNOWN INDICATION
     Dosage: 10 MG, QHS
     Route: 048
     Dates: start: 20130415, end: 20130418
  6. GOLYTELY [Concomitant]
     Active Substance: POLYETHYLENE GLYCOL 3350\POTASSIUM CHLORIDE\SODIUM BICARBONATE\SODIUM CHLORIDE\SODIUM SULFATE ANHYDROUS
     Indication: LAXATIVE SUPPORTIVE CARE
     Dosage: 4000 ML, SINGLE
     Route: 048
     Dates: start: 20130415, end: 20130416
  7. MAGNESIUM CITRATE. [Concomitant]
     Active Substance: MAGNESIUM CITRATE
     Indication: PRODUCT USED FOR UNKNOWN INDICATION
     Dosage: 300 ML, SINGLE
     Route: 048
     Dates: start: 20130415, end: 20130416
  8. NORMAL SALINE [Concomitant]
     Active Substance: SODIUM CHLORIDE
     Dosage: 999 ML, Q1H
     Route: 042
     Dates: start: 20130420, end: 20130420
  9. NORMAL SALINE [Concomitant]
     Active Substance: SODIUM CHLORIDE
     Dosage: 999 ML, Q1H
     Route: 042
     Dates: start: 20130425, end: 20130425
  10. DIFLUCAN [Concomitant]
     Active Substance: FLUCONAZOLE
     Indication: PRODUCT USED FOR UNKNOWN INDICATION
     Dosage: 100 MG, QD
     Route: 042
     Dates: start: 20130417, end: 20130430
  11. DILAUDID [Concomitant]
     Active Substance: HYDROMORPHONE HYDROCHLORIDE
     Dosage: 0.25 MG, SINGLE
     Route: 042
     Dates: start: 20130501, end: 20130501
  12. DILAUDID [Concomitant]
     Active Substance: HYDROMORPHONE HYDROCHLORIDE
     Dosage: 0.5 MG, Q4HRS PRN
     Route: 042
     Dates: start: 20130511, end: 20130513
  13. ATIVAN [Concomitant]
     Active Substance: LORAZEPAM
     Dosage: 0.5 MG, SINGLE
     Route: 042
     Dates: start: 20130510, end: 20130510
  14. PROTONIX                           /01263204/ [Concomitant]
     Dosage: 40 MG, QD
     Route: 048
     Dates: start: 20130511, end: 20130513
  15. LONITEN [Concomitant]
     Active Substance: MINOXIDIL
     Indication: PRODUCT USED FOR UNKNOWN INDICATION
     Dosage: UNK
     Route: 065
     Dates: end: 201305
  16. SENSIPAR [Concomitant]
     Active Substance: CINACALCET HYDROCHLORIDE
     Indication: PRODUCT USED FOR UNKNOWN INDICATION
     Dosage: 30 MG, QOD
     Route: 048
     Dates: start: 20130415, end: 20130418
  17. CITALOPRAM [Concomitant]
     Active Substance: CITALOPRAM HYDROBROMIDE
     Dosage: 30 MG, QD
     Route: 048
     Dates: start: 20130511, end: 20130513
  18. PHENERGAN [Concomitant]
     Active Substance: PROMETHAZINE HYDROCHLORIDE
     Dosage: 12.5 MG, SINGLE
     Route: 042
     Dates: start: 20130510, end: 20130510
  19. NORMAL SALINE [Concomitant]
     Active Substance: SODIUM CHLORIDE
     Dosage: 500 ML, SINGLE
     Route: 042
     Dates: start: 20150510, end: 20150510
  20. BENADRYL [Concomitant]
     Active Substance: DIPHENHYDRAMINE HYDROCHLORIDE
     Dosage: 25 MG, Q4HRS PRN
     Route: 042
     Dates: start: 20130415, end: 20130418
  21. DILAUDID [Concomitant]
     Active Substance: HYDROMORPHONE HYDROCHLORIDE
     Dosage: 1 MG, PRN
     Route: 042
     Dates: start: 20130511, end: 20130511
  22. ECULIZUMAB [Suspect]
     Active Substance: ECULIZUMAB
     Indication: HAEMOLYTIC URAEMIC SYNDROME
     Dosage: UNK
     Route: 042
     Dates: start: 20111026
  23. VALCYTE [Concomitant]
     Active Substance: VALGANCICLOVIR HYDROCHLORIDE
     Dosage: 450 MG, QD
     Route: 048
     Dates: start: 20130416, end: 20130416
  24. CATAPRES [Concomitant]
     Active Substance: CLONIDINE HYDROCHLORIDE
     Dosage: 0.3 MG, TID
     Route: 048
     Dates: start: 20130415, end: 20130418
  25. CATAPRES [Concomitant]
     Active Substance: CLONIDINE HYDROCHLORIDE
     Dosage: 0.3 MG, SINGLE
     Route: 048
     Dates: start: 20130511, end: 20130511
  26. CATAPRES [Concomitant]
     Active Substance: CLONIDINE HYDROCHLORIDE
     Dosage: 0.3 MG, Q8H
     Route: 048
     Dates: start: 20130511, end: 20130513
  27. COREG [Concomitant]
     Active Substance: CARVEDILOL
     Indication: HYPERTENSION
     Dosage: 25 MG, BID
     Route: 065
     Dates: start: 20130415, end: 20130418
  28. DILTIAZEM [Concomitant]
     Active Substance: DILTIAZEM
     Dosage: 360 MG, QD
     Route: 048
     Dates: start: 20130511, end: 20130513
  29. ERGOCALCIFEROL. [Concomitant]
     Active Substance: ERGOCALCIFEROL
     Dosage: 50000 UT, QD
     Route: 048
     Dates: start: 20130513
  30. DILAUDID [Concomitant]
     Active Substance: HYDROMORPHONE HYDROCHLORIDE
     Dosage: 0.25 MG, PRN
     Route: 042
     Dates: start: 20130510, end: 20130510
  31. PROTONIX                           /01263204/ [Concomitant]
     Indication: PRODUCT USED FOR UNKNOWN INDICATION
     Dosage: 40 MG, QD
     Route: 042
     Dates: start: 20130415, end: 20130418
  32. TRANDATE [Concomitant]
     Active Substance: LABETALOL HYDROCHLORIDE
     Indication: PRODUCT USED FOR UNKNOWN INDICATION
     Dosage: 20 MG, SINGLE
     Route: 042
     Dates: start: 20130510, end: 20130510
  33. VALCYTE [Concomitant]
     Active Substance: VALGANCICLOVIR HYDROCHLORIDE
     Dosage: 450 MG, QD
     Route: 048
     Dates: start: 20130415, end: 20130418
  34. VALCYTE [Concomitant]
     Active Substance: VALGANCICLOVIR HYDROCHLORIDE
     Dosage: 450 MG, QD
     Route: 048
     Dates: start: 20130511, end: 20130513
  35. DELTASONE [Concomitant]
     Active Substance: PREDNISONE
     Dosage: 10 MG, QD
     Route: 048
     Dates: start: 20130415, end: 20130418
  36. PROGRAFT [Concomitant]
     Active Substance: TACROLIMUS
     Dosage: 3 MG, QD
     Route: 048
     Dates: start: 20130415, end: 20130418
  37. COREG [Concomitant]
     Active Substance: CARVEDILOL
     Dosage: 25 MG, Q12H
     Route: 048
     Dates: start: 20130513
  38. PHENERGAN [Concomitant]
     Active Substance: PROMETHAZINE HYDROCHLORIDE
     Dosage: 12.5 MG, SINGLE
     Route: 042
     Dates: start: 20130425, end: 20130425
  39. DIOVAN [Concomitant]
     Active Substance: VALSARTAN
     Dosage: 160 MG, QD
     Route: 048
     Dates: start: 20130511, end: 20130513
  40. NORMAL SALINE [Concomitant]
     Active Substance: SODIUM CHLORIDE
     Indication: TRANSFUSION
     Dosage: 1000 ML, SINGLE
     Route: 042
     Dates: start: 20130415, end: 20130418
  41. BENADRYL [Concomitant]
     Active Substance: DIPHENHYDRAMINE HYDROCHLORIDE
     Dosage: 12.5 MG, SINGLE
     Route: 042
     Dates: start: 20130418, end: 20130418
  42. BENADRYL [Concomitant]
     Active Substance: DIPHENHYDRAMINE HYDROCHLORIDE
     Dosage: 12.5 MG, SINGLE
     Route: 042
     Dates: start: 20130425, end: 20130425
  43. BENADRYL [Concomitant]
     Active Substance: DIPHENHYDRAMINE HYDROCHLORIDE
     Dosage: 12.5 MG, SINGLE
     Route: 042
     Dates: start: 20130501, end: 20130501
  44. HEPARIN [Concomitant]
     Active Substance: HEPARIN SODIUM
     Indication: PRODUCT USED FOR UNKNOWN INDICATION
     Dosage: 300 UT, SINGLE
     Route: 042
     Dates: start: 20130418, end: 20130418
  45. IMURAN [Concomitant]
     Active Substance: AZATHIOPRINE
     Dosage: 50 MG, QD
     Route: 048
     Dates: start: 20130511, end: 20130513
  46. IMURAN [Concomitant]
     Active Substance: AZATHIOPRINE
     Dosage: 50 MG, QD
     Route: 048
     Dates: start: 20130513
  47. ERGOCALCIFEROL. [Concomitant]
     Active Substance: ERGOCALCIFEROL
     Indication: PRODUCT USED FOR UNKNOWN INDICATION
     Dosage: 50000 UT, QW
     Route: 065
     Dates: start: 20130415, end: 20130415
  48. DELTASONE [Concomitant]
     Active Substance: PREDNISONE
     Dosage: 10 MG, QD
     Route: 048
     Dates: start: 20130511, end: 20130513
  49. CATAPRES [Concomitant]
     Active Substance: CLONIDINE HYDROCHLORIDE
     Dosage: 0.2 MG, SINGLE
     Route: 042
     Dates: start: 20130425, end: 20130425
  50. CITALOPRAM [Concomitant]
     Active Substance: CITALOPRAM HYDROBROMIDE
     Indication: PRODUCT USED FOR UNKNOWN INDICATION
     Dosage: 20 MG, QD
     Route: 065
     Dates: start: 20130415, end: 20130418
  51. PHENERGAN [Concomitant]
     Active Substance: PROMETHAZINE HYDROCHLORIDE
     Dosage: 12.5 MG, Q4HRS PRN
     Route: 042
     Dates: start: 20130511, end: 20130513
  52. AMBIEN [Concomitant]
     Active Substance: ZOLPIDEM TARTRATE
     Dosage: 10 MG, QHS
     Route: 048
     Dates: start: 20130511, end: 20130513
  53. BENADRYL [Concomitant]
     Active Substance: DIPHENHYDRAMINE HYDROCHLORIDE
     Dosage: 12.5 MG, SINGLE
     Route: 042
     Dates: start: 20130511, end: 20130511
  54. DILTIAZEM [Concomitant]
     Active Substance: DILTIAZEM
     Dosage: 360 MG, QD
     Route: 048
     Dates: start: 20130513
  55. DILAUDID [Concomitant]
     Active Substance: HYDROMORPHONE HYDROCHLORIDE
     Indication: PAIN
     Dosage: 1 MG, Q3HRS PRN
     Route: 042
     Dates: start: 20130415, end: 20130415
  56. DILAUDID [Concomitant]
     Active Substance: HYDROMORPHONE HYDROCHLORIDE
     Dosage: 1-2 MG
     Route: 042
     Dates: start: 20130425, end: 20130425
  57. DILAUDID [Concomitant]
     Active Substance: HYDROMORPHONE HYDROCHLORIDE
     Dosage: 1 MG, SINGLE
     Route: 042
     Dates: start: 20130427, end: 20130427
  58. TRANDATE [Concomitant]
     Active Substance: LABETALOL HYDROCHLORIDE
     Dosage: 10 MG, Q6HRS PRN
     Route: 042
     Dates: start: 20130511, end: 20130513
  59. LONITEN [Concomitant]
     Active Substance: MINOXIDIL
     Dosage: 5 MG, BID
     Route: 048
     Dates: start: 20130511, end: 20130511
  60. VALCYTE [Concomitant]
     Active Substance: VALGANCICLOVIR HYDROCHLORIDE
     Indication: IMMUNOSUPPRESSION
     Dosage: 450 MG, QD
     Route: 048
  61. SENSIPAR [Concomitant]
     Active Substance: CINACALCET HYDROCHLORIDE
     Dosage: 30 MG, QOD
     Route: 048
     Dates: start: 20130513
  62. DELTASONE [Concomitant]
     Active Substance: PREDNISONE
     Indication: IMMUNOSUPPRESSION
     Dosage: 5 MG, QD
     Route: 048
  63. DELTASONE [Concomitant]
     Active Substance: PREDNISONE
     Dosage: 10 MG, QD
     Route: 048
     Dates: start: 20130513
  64. CATAPRES [Concomitant]
     Active Substance: CLONIDINE HYDROCHLORIDE
     Indication: HYPERTENSION
     Dosage: 0.1 MG, SINGLE
     Route: 048
     Dates: start: 20130415, end: 20130415
  65. CATAPRES [Concomitant]
     Active Substance: CLONIDINE HYDROCHLORIDE
     Dosage: 0.3 MG, BID
     Route: 048
     Dates: start: 20130513
  66. PHENERGAN [Concomitant]
     Active Substance: PROMETHAZINE HYDROCHLORIDE
     Dosage: 12.5 MG, SINGLE
     Route: 042
     Dates: start: 20130418, end: 20130418
  67. PHENERGAN [Concomitant]
     Active Substance: PROMETHAZINE HYDROCHLORIDE
     Dosage: 12.5 MG, SINGLE
     Route: 042
     Dates: start: 20130511, end: 20130511
  68. AMBIEN [Concomitant]
     Active Substance: ZOLPIDEM TARTRATE
     Dosage: 10 MG, QHS
     Route: 048
     Dates: start: 20130513
  69. BENADRYL [Concomitant]
     Active Substance: DIPHENHYDRAMINE HYDROCHLORIDE
     Dosage: 12.5 MG, Q 8 HRS PRN
     Route: 042
     Dates: start: 20130415, end: 20130418
  70. BENADRYL [Concomitant]
     Active Substance: DIPHENHYDRAMINE HYDROCHLORIDE
     Dosage: 50 MG, SINGLE
     Route: 042
     Dates: start: 20130425, end: 20130425
  71. BENADRYL [Concomitant]
     Active Substance: DIPHENHYDRAMINE HYDROCHLORIDE
     Dosage: 25 MG, SINGLE
     Route: 042
     Dates: start: 20130427, end: 20130427
  72. BENADRYL [Concomitant]
     Active Substance: DIPHENHYDRAMINE HYDROCHLORIDE
     Dosage: 25 MG, Q4HRS PRN
     Route: 042
     Dates: start: 20130511, end: 20130513
  73. VALCYTE [Concomitant]
     Active Substance: VALGANCICLOVIR HYDROCHLORIDE
     Dosage: 450 MG, QD
     Dates: start: 20130415, end: 20130415
  74. VALCYTE [Concomitant]
     Active Substance: VALGANCICLOVIR HYDROCHLORIDE
     Dosage: 450 MG, QOD
     Route: 048
     Dates: start: 20130513
  75. PROGRAFT [Concomitant]
     Active Substance: TACROLIMUS
     Indication: IMMUNOSUPPRESSION
     Dosage: 3 MG, QD
     Route: 048
     Dates: start: 20130415, end: 20130415
  76. CITALOPRAM [Concomitant]
     Active Substance: CITALOPRAM HYDROBROMIDE
     Dosage: 20 MG, QD
     Route: 048
     Dates: start: 20130513
  77. PHENERGAN [Concomitant]
     Active Substance: PROMETHAZINE HYDROCHLORIDE
     Indication: NAUSEA
     Dosage: 25 MG, Q 4 HRS PRN
     Route: 048
     Dates: start: 20130415, end: 20130418
  78. PHENERGAN [Concomitant]
     Active Substance: PROMETHAZINE HYDROCHLORIDE
     Dosage: 12.5 MG, SINGLE
     Route: 042
     Dates: start: 20130501, end: 20130501
  79. NORMAL SALINE [Concomitant]
     Active Substance: SODIUM CHLORIDE
     Dosage: 75 ML, Q1H
     Route: 042
     Dates: start: 20130415, end: 20130418
  80. BENADRYL [Concomitant]
     Active Substance: DIPHENHYDRAMINE HYDROCHLORIDE
     Indication: PRODUCT USED FOR UNKNOWN INDICATION
     Dosage: 25 MG, SINGLE
     Route: 048
     Dates: start: 20130415, end: 20130415
  81. BENADRYL [Concomitant]
     Active Substance: DIPHENHYDRAMINE HYDROCHLORIDE
     Dosage: 12.5 MG, SINGLE
     Route: 042
     Dates: start: 20130420, end: 20130420
  82. BENADRYL [Concomitant]
     Active Substance: DIPHENHYDRAMINE HYDROCHLORIDE
     Dosage: 25 MG, SINGLE
     Route: 042
     Dates: start: 20130510, end: 20130510
  83. HEPARIN [Concomitant]
     Active Substance: HEPARIN SODIUM
     Dosage: 5 ML, SINGLE
     Route: 042
     Dates: start: 20130513, end: 20130513
  84. IMURAN [Concomitant]
     Active Substance: AZATHIOPRINE
     Indication: PRODUCT USED FOR UNKNOWN INDICATION
     Dosage: 50 MG, QD
     Route: 048
     Dates: start: 20130415, end: 20130418
  85. DILTIAZEM [Concomitant]
     Active Substance: DILTIAZEM
     Indication: PRODUCT USED FOR UNKNOWN INDICATION
     Dosage: 360 MG, QD
     Route: 048
     Dates: start: 20130415, end: 20130418
  86. ERGOCALCIFEROL. [Concomitant]
     Active Substance: ERGOCALCIFEROL
     Dosage: 50000 UT, QW
     Route: 048
     Dates: start: 20130511, end: 20130511
  87. ECULIZUMAB [Suspect]
     Active Substance: ECULIZUMAB
     Dosage: 1200 MG, Q2W
     Route: 042
     Dates: start: 20111107
  88. SENSIPAR [Concomitant]
     Active Substance: CINACALCET HYDROCHLORIDE
     Dosage: 30 MG, QOD
     Route: 048
     Dates: start: 20130511, end: 20130513
  89. PROGRAFT [Concomitant]
     Active Substance: TACROLIMUS
     Dosage: 2 MG, QHS
     Route: 048
     Dates: start: 20130415, end: 20130418
  90. PROGRAFT [Concomitant]
     Active Substance: TACROLIMUS
     Dosage: 4 MG, Q12H
     Route: 048
     Dates: start: 20130511, end: 20130513
  91. PROGRAFT [Concomitant]
     Active Substance: TACROLIMUS
     Dosage: 4 MG, Q12H
     Route: 048
     Dates: start: 20130513
  92. PHENERGAN [Concomitant]
     Active Substance: PROMETHAZINE HYDROCHLORIDE
     Indication: VOMITING
     Dosage: 12.5 UNK, Q 6 HRS PRN
     Route: 042
     Dates: start: 20130416, end: 20130418
  93. PHENERGAN [Concomitant]
     Active Substance: PROMETHAZINE HYDROCHLORIDE
     Dosage: 12.5 MG, PRN
     Route: 042
     Dates: start: 20130427, end: 20130427
  94. DIOVAN [Concomitant]
     Active Substance: VALSARTAN
     Indication: PRODUCT USED FOR UNKNOWN INDICATION
     Dosage: 160 MG, QD
     Route: 048
     Dates: start: 20130415, end: 20130418
  95. NORMAL SALINE [Concomitant]
     Active Substance: SODIUM CHLORIDE
     Dosage: 20 ML, Q1H
     Route: 042
     Dates: start: 20130416, end: 20130418
  96. HEPARIN [Concomitant]
     Active Substance: HEPARIN SODIUM
     Dosage: 5 ML, SINGLE
     Route: 042
     Dates: start: 20130501, end: 20130501
  97. ATIVAN [Concomitant]
     Active Substance: LORAZEPAM
     Indication: ANXIETY
     Dosage: 0.5 MG, TID PRN
     Route: 048
     Dates: start: 20130415, end: 20130418

REACTIONS (1)
  - Gastroenteritis [Recovered/Resolved]

NARRATIVE: CASE EVENT DATE: 20130511
